FAERS Safety Report 15206533 (Version 1)
Quarter: 2018Q3

REPORT INFORMATION
  Report Type: Spontaneous
  Country: US (occurrence: US)
  Receive Date: 20180727
  Receipt Date: 20180727
  Transmission Date: 20181010
  Serious: Yes (Hospitalization, Other)
  Sender: FDA-Public Use
  Company Number: US-PFIZER INC-2018299640

PATIENT
  Age: 70 Year
  Sex: Female

DRUGS (3)
  1. CELEBREX [Suspect]
     Active Substance: CELECOXIB
     Indication: PAIN IN EXTREMITY
     Dosage: 200 MG, (ONCE OR TWICE DAILY AT THE MOST MAYBE)
     Route: 048
     Dates: start: 2002, end: 201211
  2. NIACIN. [Concomitant]
     Active Substance: NIACIN
  3. BABY ASPIRIN [Suspect]
     Active Substance: ASPIRIN
     Indication: CARDIAC DISORDER
     Dosage: 81 MG, DAILY
     Route: 048
     Dates: end: 201211

REACTIONS (4)
  - Gastrointestinal haemorrhage [Recovered/Resolved]
  - Polyp [Unknown]
  - Diverticulum [Unknown]
  - Haematochezia [Unknown]

NARRATIVE: CASE EVENT DATE: 201211
